FAERS Safety Report 17604970 (Version 1)
Quarter: 2020Q1

REPORT INFORMATION
  Report Type: Spontaneous
  Country: MY (occurrence: MY)
  Receive Date: 20200331
  Receipt Date: 20200331
  Transmission Date: 20200409
  Serious: Yes (Hospitalization)
  Sender: FDA-Public Use
  Company Number: NVSC2020MY087443

PATIENT
  Age: 43 Year
  Sex: Male

DRUGS (4)
  1. SPIRONOLACTONE. [Suspect]
     Active Substance: SPIRONOLACTONE
     Indication: CARDIAC FAILURE
     Dosage: 25 MG, BID
     Route: 065
  2. BISOPROLOL [Suspect]
     Active Substance: BISOPROLOL
     Indication: CARDIAC FAILURE
     Dosage: 2.5 MG, QD
     Route: 065
  3. PERINDOPRIL [Suspect]
     Active Substance: PERINDOPRIL
     Indication: CARDIAC FAILURE
     Dosage: 2 MG, QD
     Route: 065
  4. DIGOXIN. [Suspect]
     Active Substance: DIGOXIN
     Indication: CARDIAC FAILURE
     Dosage: 0.25 MG, QD
     Route: 065

REACTIONS (2)
  - Cardiac failure acute [Unknown]
  - Renal impairment [Unknown]
